FAERS Safety Report 8298341-3 (Version None)
Quarter: 2012Q2

REPORT INFORMATION
  Report Type: 
  Country: None (occurrence: None)
  Receive Date: 20120419
  Receipt Date: 20120404
  Transmission Date: 20120825
  Serious: Yes (Hospitalization)
  Sender: FDA-Public Use
  Company Number: US-ROCHE-1057206

PATIENT
  Sex: Female
  Weight: 49.2 kg

DRUGS (11)
  1. AVASTIN [Suspect]
     Indication: GASTRIC CANCER
     Route: 042
     Dates: start: 20120323
  2. LORAZEPAM [Concomitant]
  3. HYDROCODONE BITARTRATE AND ACETAMINOPHEN [Concomitant]
  4. PROCHLORPERAZINE [Concomitant]
  5. AMOXICILLIN [Concomitant]
  6. PANTOPRAZOLE [Concomitant]
  7. CARBOPLATIN [Suspect]
     Indication: GASTRIC CANCER
     Dosage: 6 AUC
     Dates: start: 20101125
  8. CLARITHROMYCIN [Concomitant]
  9. DOCUSATE [Concomitant]
  10. XELODA [Suspect]
     Indication: GASTRIC CANCER
     Dosage: ON DAY 1-14 OF EVERY 21 DAY CYCLE
     Dates: start: 20101220
  11. ONDANSETRON [Concomitant]

REACTIONS (2)
  - PLEURAL EFFUSION [None]
  - PANCREATITIS [None]
